FAERS Safety Report 8221305 (Version 4)
Quarter: 2013Q1

REPORT INFORMATION
  Report Type: Spontaneous
  Country: AR (occurrence: AR)
  Receive Date: 20111102
  Receipt Date: 20130129
  Transmission Date: 20140127
  Serious: Yes (Other)
  Sender: FDA-Public Use
  Company Number: AR-AMGEN-ARGSP2011054765

PATIENT
  Age: 52 Year
  Sex: Female
  Weight: 89 kg

DRUGS (2)
  1. ENBREL [Suspect]
     Indication: RHEUMATOID ARTHRITIS
     Dosage: 50 MG, WEEKLY
     Route: 058
     Dates: start: 20070621, end: 201103
  2. INSULIN [Concomitant]
     Dosage: UNK

REACTIONS (6)
  - Renal failure [Not Recovered/Not Resolved]
  - Swelling [Recovered/Resolved]
  - Skin ulcer [Recovered/Resolved]
  - Infection [Recovered/Resolved]
  - Kidney infection [Not Recovered/Not Resolved]
  - Influenza [Recovered/Resolved]
